FAERS Safety Report 10900489 (Version 1)
Quarter: 2015Q1

REPORT INFORMATION
  Report Type: Spontaneous
  Country: AU (occurrence: AU)
  Receive Date: 20150310
  Receipt Date: 20150310
  Transmission Date: 20150721
  Serious: Yes (Other)
  Sender: FDA-Public Use
  Company Number: AU-ROCHE-1546654

PATIENT
  Sex: Female
  Weight: 107 kg

DRUGS (10)
  1. DIABEX [Concomitant]
     Active Substance: METFORMIN HYDROCHLORIDE
  2. NOVOMIX 30 [Concomitant]
     Active Substance: INSULIN ASPART
  3. CIPRAMIL [Suspect]
     Active Substance: CITALOPRAM HYDROBROMIDE
     Indication: PRODUCT USED FOR UNKNOWN INDICATION
     Route: 065
  4. EPILIM [Concomitant]
     Active Substance: VALPROATE SODIUM
  5. VALIUM [Suspect]
     Active Substance: DIAZEPAM
     Indication: PRODUCT USED FOR UNKNOWN INDICATION
     Route: 065
  6. ATACAND [Concomitant]
     Active Substance: CANDESARTAN CILEXETIL
  7. FOLIC ACID. [Suspect]
     Active Substance: FOLIC ACID
     Indication: PRODUCT USED FOR UNKNOWN INDICATION
     Route: 048
     Dates: start: 20110721
  8. LOSEC [Suspect]
     Active Substance: OMEPRAZOLE
     Indication: PRODUCT USED FOR UNKNOWN INDICATION
     Route: 065
  9. METHOTREXATE [Suspect]
     Active Substance: METHOTREXATE
     Indication: PRODUCT USED FOR UNKNOWN INDICATION
     Route: 065
     Dates: start: 20110721, end: 20141001
  10. NORSPAN (AUSTRALIA) [Concomitant]

REACTIONS (6)
  - Acute kidney injury [Not Recovered/Not Resolved]
  - Rash erythematous [Not Recovered/Not Resolved]
  - Weight decreased [Not Recovered/Not Resolved]
  - Pancytopenia [Recovered/Resolved]
  - Mouth ulceration [Not Recovered/Not Resolved]
  - Dysphagia [Not Recovered/Not Resolved]
